FAERS Safety Report 4470919-4 (Version None)
Quarter: 2004Q4

REPORT INFORMATION
  Report Type: 
  Country: None (occurrence: None)
  Receive Date: 20041011
  Receipt Date: 20040319
  Transmission Date: 20050328
  Serious: Yes (Death, Hospitalization, Other)
  Sender: FDA-Public Use
  Company Number: US-MERCK-0403USA01877

PATIENT
  Age: 54 Year
  Sex: Male
  Weight: 118 kg

DRUGS (1)
  1. VIOXX [Suspect]
     Indication: ARTHRITIS
     Route: 048
     Dates: start: 19990101

REACTIONS (21)
  - BURNING SENSATION [None]
  - CARDIOMEGALY [None]
  - CORONARY ARTERY ATHEROSCLEROSIS [None]
  - CORONARY ARTERY THROMBOSIS [None]
  - CYANOSIS [None]
  - DEATH [None]
  - FALL [None]
  - FEMUR FRACTURE [None]
  - GOUT [None]
  - HIP FRACTURE [None]
  - LIMB DISCOMFORT [None]
  - LOWER LIMB DEFORMITY [None]
  - MYOCARDIAL FIBROSIS [None]
  - MYOCARDIAL INFARCTION [None]
  - MYOCARDIAL ISCHAEMIA [None]
  - NEPHROLITHIASIS [None]
  - OEDEMA PERIPHERAL [None]
  - PAIN IN EXTREMITY [None]
  - PERICARDIAL EFFUSION [None]
  - PULMONARY CONGESTION [None]
  - VENTRICULAR HYPERTROPHY [None]
